FAERS Safety Report 5038259-2 (Version None)
Quarter: 2006Q2

REPORT INFORMATION
  Report Type: 
  Country: None (occurrence: None)
  Receive Date: 20060628
  Receipt Date: 20060628
  Transmission Date: 20061013
  Serious: Yes (Life-Threatening, Hospitalization, Other)
  Sender: FDA-Public Use
  Company Number: None

PATIENT
  Age: 37 Year
  Sex: Male
  Weight: 84 kg

DRUGS (21)
  1. CYCLOSPORINE [Suspect]
     Indication: IMMUNOSUPPRESSANT DRUG THERAPY
     Dosage: 4 MG/HR CONTINOUS DRIP IV DRIP
     Route: 041
     Dates: start: 20040317, end: 20050405
  2. AZATHIOPRINE [Suspect]
     Indication: IMMUNOSUPPRESSANT DRUG THERAPY
     Dosage: 75 MG EVERY 12 HRS IV BOLUS
     Route: 040
     Dates: start: 20050317, end: 20050405
  3. SOLU-MEDROL [Concomitant]
  4. DOBUTAMINE HCL [Concomitant]
  5. BACTRIM DS [Concomitant]
  6. NYSTATIN [Concomitant]
  7. PEPCID [Concomitant]
  8. MIRALAX [Concomitant]
  9. MILRINONE [Concomitant]
  10. PROPOFOL [Concomitant]
  11. NOVOLIN INSULIN [Concomitant]
  12. IMURAN [Concomitant]
  13. AMPHOTERICIN B [Concomitant]
  14. NEBULIZED TOBRAMYCIN [Concomitant]
  15. GANCICLOVIR [Concomitant]
  16. SIMULECT [Concomitant]
  17. CEFUROXIME [Concomitant]
  18. CYCLOSPORINE [Concomitant]
  19. EPINEPHRINE [Concomitant]
  20. VERSED [Concomitant]
  21. DEXTROSE 5% [Concomitant]

REACTIONS (9)
  - FUNGAL INFECTION [None]
  - HAEMOGLOBIN DECREASED [None]
  - LUNG TRANSPLANT [None]
  - PANCREATIC HAEMORRHAGE [None]
  - PANCREATIC PSEUDOCYST [None]
  - PANCREATITIS [None]
  - POST PROCEDURAL COMPLICATION [None]
  - SEPSIS [None]
  - SPLENECTOMY [None]
